FAERS Safety Report 9303004 (Version 1)
Quarter: 2013Q2

REPORT INFORMATION
  Report Type: Spontaneous
  Country: JP (occurrence: JP)
  Receive Date: 20130522
  Receipt Date: 20130522
  Transmission Date: 20140414
  Serious: Yes (Other)
  Sender: FDA-Public Use
  Company Number: JP-PFIZER INC-2013151121

PATIENT
  Sex: Male

DRUGS (5)
  1. ALDACTONE A [Suspect]
     Indication: CARDIAC FAILURE
     Dosage: 12.5 MG, 1X/DAY
     Route: 048
  2. ALDACTONE A [Suspect]
     Dosage: 12.5 MG, ALTERNATE DAY
     Route: 048
  3. ALDACTONE A [Suspect]
     Dosage: 12.5 MG, 1X/DAY
     Route: 048
  4. WARFARIN [Concomitant]
  5. ARTIST [Concomitant]

REACTIONS (4)
  - Blood creatinine increased [Unknown]
  - Hypotension [Unknown]
  - Dysuria [Unknown]
  - International normalised ratio abnormal [Unknown]
